FAERS Safety Report 9909466 (Version 1)
Quarter: 2014Q1

REPORT INFORMATION
  Report Type: Spontaneous
  Country: US (occurrence: None)
  Receive Date: 20140214
  Receipt Date: 20140214
  Transmission Date: 20141002
  Serious: No
  Sender: FDA-Public Use
  Company Number: None

PATIENT
  Age: 61 Year
  Sex: Male

DRUGS (11)
  1. PALIPERIDONE [Suspect]
     Route: 048
  2. PROZAC [Concomitant]
  3. HCTZ [Concomitant]
  4. TOPAMAX [Concomitant]
  5. METFORMIN [Concomitant]
  6. SEROQUEL [Concomitant]
  7. VALIUM [Concomitant]
  8. LYRICA [Concomitant]
  9. LUVOX [Concomitant]
  10. CLONIDINE [Concomitant]
  11. TENEX [Concomitant]

REACTIONS (1)
  - Cogwheel rigidity [None]
